FAERS Safety Report 18282900 (Version 1)
Quarter: 2020Q3

REPORT INFORMATION
  Report Type: Spontaneous
  Country: US (occurrence: US)
  Receive Date: 20200918
  Receipt Date: 20200918
  Transmission Date: 20201103
  Serious: Yes (Life-Threatening)
  Sender: FDA-Public Use
  Company Number: None

PATIENT
  Age: 73 Year
  Sex: Male
  Weight: 63 kg

DRUGS (12)
  1. APIXABAN [Suspect]
     Active Substance: APIXABAN
     Indication: ATRIAL FIBRILLATION
     Route: 048
  2. FUROSEMIDE 20 MG [Concomitant]
     Active Substance: FUROSEMIDE
  3. TAMSOLUSIN 0.4 MG [Concomitant]
  4. METOPROLOL TARTRATE 25 MG [Concomitant]
     Active Substance: METOPROLOL TARTRATE
  5. ENALAPRIL 10 MG [Concomitant]
     Active Substance: ENALAPRIL
  6. METFORMIN [Concomitant]
     Active Substance: METFORMIN HYDROCHLORIDE
  7. AMLODIPINE [Concomitant]
     Active Substance: AMLODIPINE BESYLATE
  8. ASPIRIN 81 MG [Concomitant]
     Active Substance: ASPIRIN
  9. ATORVASTATIN 20 MG [Concomitant]
     Active Substance: ATORVASTATIN
  10. RANOLAZINE 500 MG [Concomitant]
  11. VENLAFAXINE [Concomitant]
     Active Substance: VENLAFAXINE HYDROCHLORIDE
  12. MIRALAX [Concomitant]
     Active Substance: POLYETHYLENE GLYCOL 3350

REACTIONS (2)
  - Therapy interrupted [None]
  - Haemorrhage intracranial [None]

NARRATIVE: CASE EVENT DATE: 20200918
